FAERS Safety Report 7058456-4 (Version None)
Quarter: 2010Q4

REPORT INFORMATION
  Report Type: 
  Country: None (occurrence: None)
  Receive Date: 20101022
  Receipt Date: 20101012
  Transmission Date: 20110411
  Serious: Yes (Death)
  Sender: FDA-Public Use
  Company Number: GXKR2010IN11411

PATIENT
  Age: 35 Year
  Sex: Female

DRUGS (2)
  1. FLUCONAZOLE [Suspect]
     Indication: CANDIDIASIS
     Dosage: 100 MG/DAY
     Route: 065
  2. ANTIVIRALS FOR SYSTEMIC USE [Concomitant]

REACTIONS (4)
  - DRUG RESISTANCE [None]
  - PYREXIA [None]
  - SEPTIC SHOCK [None]
  - SYSTEMIC CANDIDA [None]
